FAERS Safety Report 10803794 (Version 1)
Quarter: 2015Q1

REPORT INFORMATION
  Report Type: Report from Study
  Country: US (occurrence: US)
  Receive Date: 20150217
  Receipt Date: 20150217
  Transmission Date: 20150721
  Serious: Yes (Other)
  Sender: FDA-Public Use
  Company Number: US-CELGENE-USA-2015021038

PATIENT
  Age: 62 Year

DRUGS (3)
  1. REVLIMID [Suspect]
     Active Substance: LENALIDOMIDE
     Indication: PLASMA CELL MYELOMA
     Route: 048
     Dates: start: 20110725, end: 20121120
  2. VELCADE [Suspect]
     Active Substance: BORTEZOMIB
     Route: 041
     Dates: end: 20120625
  3. VELCADE [Suspect]
     Active Substance: BORTEZOMIB
     Indication: PLASMA CELL MYELOMA
     Route: 041
     Dates: start: 20110725, end: 20120423

REACTIONS (1)
  - Joint effusion [Unknown]

NARRATIVE: CASE EVENT DATE: 20120430
